FAERS Safety Report 10513663 (Version 1)
Quarter: 2014Q4

REPORT INFORMATION
  Report Type: Spontaneous
  Country: SV (occurrence: SV)
  Receive Date: 20141013
  Receipt Date: 20141013
  Transmission Date: 20150528
  Serious: No
  Sender: FDA-Public Use
  Company Number: SV-SA-2014SA134229

PATIENT

DRUGS (1)
  1. ARAVA [Suspect]
     Active Substance: LEFLUNOMIDE
     Indication: RHEUMATOID ARTHRITIS
     Route: 064
     Dates: end: 20140909

REACTIONS (1)
  - Foetal exposure timing unspecified [Unknown]

NARRATIVE: CASE EVENT DATE: 20140725
